FAERS Safety Report 22330840 (Version 1)
Quarter: 2023Q2

REPORT INFORMATION
  Report Type: Spontaneous
  Country: US (occurrence: US)
  Receive Date: 20230517
  Receipt Date: 20230517
  Transmission Date: 20230721
  Serious: Yes (Death, Other)
  Sender: FDA-Public Use
  Company Number: US-SUN PHARMACEUTICAL INDUSTRIES LTD-2023R1-381045

PATIENT
  Age: 27 Year
  Sex: Female

DRUGS (8)
  1. DEXAMETHASONE [Suspect]
     Active Substance: DEXAMETHASONE
     Indication: Arthralgia
     Dosage: UNK
     Route: 065
  2. DEXAMETHASONE [Suspect]
     Active Substance: DEXAMETHASONE
     Indication: Rash
  3. ASPIRIN [Suspect]
     Active Substance: ASPIRIN
     Indication: Arthralgia
     Dosage: UNK
     Route: 065
  4. ASPIRIN [Suspect]
     Active Substance: ASPIRIN
     Indication: Rash
  5. ENOXAPARIN SODIUM [Suspect]
     Active Substance: ENOXAPARIN SODIUM
     Indication: Arthralgia
     Dosage: UNK
     Route: 065
  6. ENOXAPARIN SODIUM [Suspect]
     Active Substance: ENOXAPARIN SODIUM
     Indication: Rash
  7. CHLOROQUINE [Suspect]
     Active Substance: CHLOROQUINE
     Indication: Arthralgia
     Dosage: UNK
     Route: 065
  8. CHLOROQUINE [Suspect]
     Active Substance: CHLOROQUINE
     Indication: Rash

REACTIONS (5)
  - Drug ineffective [Fatal]
  - Atrioventricular block complete [Fatal]
  - Hydrops foetalis [Fatal]
  - Foetal death [Fatal]
  - Maternal exposure during pregnancy [Unknown]
